FAERS Safety Report 4894859-1 (Version None)
Quarter: 2006Q1

REPORT INFORMATION
  Report Type: 
  Country: None (occurrence: None)
  Receive Date: 20060124
  Receipt Date: 20060110
  Transmission Date: 20060701
  Serious: Yes (Other)
  Sender: FDA-Public Use
  Company Number: 200512IM000792

PATIENT
  Age: 61 Year
  Sex: Female

DRUGS (9)
  1. ADVAFERON (A643_INTERFERON ALFACON-1) [Suspect]
     Indication: HEPATITIS C
     Dosage: SEE IMAGE
     Route: 058
     Dates: start: 20020731, end: 20030630
  2. ADVAFERON (A643_INTERFERON ALFACON-1) [Suspect]
     Indication: HEPATITIS C
     Dosage: SEE IMAGE
     Route: 058
     Dates: start: 20030702, end: 20031211
  3. ADVAFERON (A643_INTERFERON ALFACON-1) [Suspect]
     Indication: HEPATITIS C
     Dosage: SEE IMAGE
     Route: 058
     Dates: start: 20040213, end: 20040405
  4. PEGINTERFERON ALFA-2A [Concomitant]
  5. URSODEOXYCHOLIC ACID [Concomitant]
  6. SENNOSIDE A+B [Concomitant]
  7. CLOTIAZEPAM [Concomitant]
  8. ALFACALCIDOL [Concomitant]
  9. CALCIUM GLUCONATE [Concomitant]

REACTIONS (1)
  - RETINAL VEIN OCCLUSION [None]
